FAERS Safety Report 7459712-8 (Version None)
Quarter: 2011Q2

REPORT INFORMATION
  Report Type: 
  Country: None (occurrence: None)
  Receive Date: 20110505
  Receipt Date: 20110321
  Transmission Date: 20111010
  Serious: Yes (Hospitalization, Other)
  Sender: FDA-Public Use
  Company Number: US-BAYER-201024541NA

PATIENT
  Age: 48 Year
  Sex: Female
  Weight: 58.957 kg

DRUGS (24)
  1. PRAVASTATIN [Concomitant]
     Indication: HYPERLIPIDAEMIA
     Dosage: 20 MG, UNK
     Dates: start: 20090403, end: 20090626
  2. NIASPAN [Concomitant]
     Indication: HYPERLIPIDAEMIA
     Dosage: UNK
     Dates: start: 20091117
  3. CALCIUM +VIT D [Concomitant]
  4. HYDROCODONE BITARTRATE AND ACETAMINOPHEN [Concomitant]
     Dosage: 500 MG, UNK
     Route: 048
     Dates: start: 20080708
  5. YAZ [Suspect]
     Indication: PREMENSTRUAL SYNDROME
     Dosage: UNK UNK, QD
     Route: 048
     Dates: start: 20080901, end: 20090522
  6. NSAID'S [Concomitant]
  7. ALBUTEROL INHALER [Concomitant]
  8. ALLEGRA [Concomitant]
  9. TOPROL-XL [Concomitant]
     Dosage: 50 MG, UNK
  10. METRONIDAZOLE [Concomitant]
     Dosage: 0.75 %, UNK
     Route: 061
     Dates: start: 20080708
  11. LORTAB [Concomitant]
     Dosage: 5 MG, UNK
  12. NASONEX [Concomitant]
  13. ASPIRIN [Concomitant]
     Dosage: 325 MG, UNK
  14. AMLODIPINE [Concomitant]
     Dosage: 5 MG, UNK
  15. YAZ [Suspect]
     Dosage: UNK
     Dates: start: 20080901, end: 20090522
  16. YASMIN [Suspect]
     Indication: PREMENSTRUAL SYNDROME
     Dosage: UNK UNK, QD
     Route: 048
     Dates: start: 20080701, end: 20090501
  17. VITAMIN B COMPLEX CAP [Concomitant]
  18. LIPITOR [Concomitant]
     Indication: HYPERLIPIDAEMIA
     Dosage: UNK
     Dates: start: 20090626
  19. PRILOSEC [Concomitant]
     Dosage: 20 MG, UNK
  20. ASPIRIN [Concomitant]
     Dosage: 81 MG, UNK
  21. FLEXERIL [Concomitant]
     Dosage: 10 MG, UNK
  22. NEURONTIN [Concomitant]
     Dosage: 800 MG, UNK
  23. NEURONTIN [Concomitant]
     Dosage: 400 MG, UNK
  24. PLAVIX [Concomitant]
     Dosage: 75 MG, UNK

REACTIONS (4)
  - CHEST PAIN [None]
  - CEREBROVASCULAR ACCIDENT [None]
  - BACK PAIN [None]
  - HEMIPARESIS [None]
